FAERS Safety Report 8276653-7 (Version None)
Quarter: 2012Q2

REPORT INFORMATION
  Report Type: 
  Country: None (occurrence: None)
  Receive Date: 20120412
  Receipt Date: 20120404
  Transmission Date: 20120825
  Serious: Yes (Hospitalization)
  Sender: FDA-Public Use
  Company Number: US-BAYER-2012-019071

PATIENT
  Age: 22 Year
  Sex: Female
  Weight: 96.145 kg

DRUGS (13)
  1. CYPROHEPTADINE HCL [Concomitant]
  2. METFORMIN HCL [Concomitant]
     Indication: POLYCYSTIC OVARIES
     Dosage: UNK
     Dates: start: 20110627
  3. SYNTHROID [Concomitant]
     Indication: HYPOTHYROIDISM
     Dosage: UNK
     Dates: start: 20110127
  4. MIRTAZAPINE [Concomitant]
  5. MORPHINE [Concomitant]
     Indication: PAIN
     Dosage: UNK
     Dates: start: 20110315
  6. LEVOTHYROXINE SODIUM [Concomitant]
     Dosage: 25 MCG
  7. LORTAB [Concomitant]
     Indication: HYPOREFLEXIA
  8. MOTRIN [Concomitant]
     Dosage: UNK
     Dates: start: 20110316
  9. CLINDAMYCIN [Concomitant]
     Dosage: UNK
     Dates: start: 20110127
  10. LORTAB [Concomitant]
     Indication: BACK PAIN
     Dosage: UNK
     Dates: start: 20110314
  11. YAZ [Suspect]
  12. DILAUDID [Concomitant]
     Dosage: UNK
     Dates: start: 20110316
  13. TYLENOL (CAPLET) [Concomitant]
     Dosage: UNK
     Dates: start: 20110316

REACTIONS (1)
  - DEEP VEIN THROMBOSIS [None]
